FAERS Safety Report 15980678 (Version 3)
Quarter: 2021Q1

REPORT INFORMATION
  Report Type: Other
  Country: NL (occurrence: NL)
  Receive Date: 20190219
  Receipt Date: 20210209
  Transmission Date: 20210419
  Serious: Yes (Death, Life-Threatening, Hospitalization, Other)
  Sender: FDA-Public Use
  Company Number: NL-ASPEN-GLO2019NL001245

PATIENT

DRUGS (4)
  1. DARATUMUMAB [Suspect]
     Active Substance: DARATUMUMAB
     Indication: AMYLOIDOSIS
     Dosage: 1800 MG, 2 DOSE WEEKLY
     Route: 058
     Dates: start: 20181128
  2. CYCLOPHOSPHAMIDE. [Suspect]
     Active Substance: CYCLOPHOSPHAMIDE
     Indication: AMYLOIDOSIS
     Dosage: 500 MG
     Route: 048
     Dates: start: 20181128
  3. DEXAMETHASONE. [Suspect]
     Active Substance: DEXAMETHASONE
     Indication: AMYLOIDOSIS
     Dosage: 10 MG
     Route: 048
     Dates: start: 20181128
  4. VELCADE [Suspect]
     Active Substance: BORTEZOMIB
     Indication: AMYLOIDOSIS
     Dosage: 1.3 MG/M2
     Route: 058
     Dates: start: 20181128

REACTIONS (7)
  - Product use in unapproved indication [Unknown]
  - Pulmonary sepsis [Recovered/Resolved]
  - Staphylococcal sepsis [Not Recovered/Not Resolved]
  - Off label use [Unknown]
  - Cardiac failure [Fatal]
  - Hypotension [Unknown]
  - Candida sepsis [Recovered/Resolved]

NARRATIVE: CASE EVENT DATE: 20181128
